FAERS Safety Report 15423597 (Version 1)
Quarter: 2018Q3

REPORT INFORMATION
  Report Type: Spontaneous
  Country: US (occurrence: US)
  Receive Date: 20180925
  Receipt Date: 20180925
  Transmission Date: 20181010
  Serious: No
  Sender: FDA-Public Use
  Company Number: US-PFIZER INC-2018385188

PATIENT
  Age: 62 Year
  Sex: Male

DRUGS (2)
  1. APOKYN [Concomitant]
     Active Substance: APOMORPHINE HYDROCHLORIDE
     Dosage: UNK (FOR 30 DAYS)
  2. TIGAN [Suspect]
     Active Substance: TRIMETHOBENZAMIDE HYDROCHLORIDE
     Indication: NAUSEA
     Dosage: UNK

REACTIONS (1)
  - Dyspnoea [Unknown]

NARRATIVE: CASE EVENT DATE: 20180907
